FAERS Safety Report 18129687 (Version 1)
Quarter: 2020Q3

REPORT INFORMATION
  Report Type: Spontaneous
  Country: US (occurrence: US)
  Receive Date: 20200807
  Receipt Date: 20200807
  Transmission Date: 20201103
  Serious: No
  Sender: FDA-Public Use
  Company Number: None

PATIENT
  Sex: Male

DRUGS (1)
  1. ENBREL [Suspect]
     Active Substance: ETANERCEPT
     Indication: ASTHMA
     Route: 058
     Dates: start: 201711, end: 202005

REACTIONS (5)
  - Cough [None]
  - Productive cough [None]
  - Dyspnoea [None]
  - Immune system disorder [None]
  - Oral infection [None]
